FAERS Safety Report 11403477 (Version 2)
Quarter: 2015Q4

REPORT INFORMATION
  Report Type: Spontaneous
  Country: US (occurrence: US)
  Receive Date: 20150821
  Receipt Date: 20151008
  Transmission Date: 20160304
  Serious: No
  Sender: FDA-Public Use
  Company Number: US-009507513-1508USA007467

PATIENT
  Age: 33 Year
  Sex: Male
  Weight: 60.77 kg

DRUGS (3)
  1. LORAZEPAM. [Concomitant]
     Active Substance: LORAZEPAM
     Dosage: 1 TABLET, BID, PRN
     Route: 048
     Dates: start: 20150627
  2. AMBIEN [Concomitant]
     Active Substance: ZOLPIDEM TARTRATE
     Dosage: 1 TABLET, QHS, PRN
     Route: 048
     Dates: start: 20130211
  3. BELSOMRA [Suspect]
     Active Substance: SUVOREXANT
     Indication: INSOMNIA
     Dosage: 10 MG, ONCE
     Route: 048
     Dates: start: 20150810, end: 20150810

REACTIONS (4)
  - Sleep paralysis [Recovered/Resolved]
  - Feeling abnormal [Recovered/Resolved]
  - Restless legs syndrome [Recovered/Resolved]
  - Nightmare [Recovered/Resolved]

NARRATIVE: CASE EVENT DATE: 20150810
